FAERS Safety Report 9099290 (Version 1)
Quarter: 2013Q1

REPORT INFORMATION
  Report Type: Spontaneous
  Country: BE (occurrence: BE)
  Receive Date: 20130213
  Receipt Date: 20130213
  Transmission Date: 20140127
  Serious: Yes (Life-Threatening)
  Sender: FDA-Public Use
  Company Number: BE-B.I. PHARMACEUTICALS,INC./RIDGEFIELD-2013-BL-00077BL

PATIENT
  Age: 71 Year
  Sex: Male
  Weight: 85 kg

DRUGS (7)
  1. PRADAXA [Suspect]
     Indication: ATRIAL FIBRILLATION
     Dosage: 300 MG
     Route: 048
  2. LANOXIN [Concomitant]
  3. LOORTAN [Concomitant]
  4. TOTALIP [Concomitant]
  5. EMCONCOR [Concomitant]
  6. SPIRIVA [Concomitant]
  7. ONBREZ [Concomitant]

REACTIONS (1)
  - Aortic aneurysm rupture [Recovered/Resolved]
